FAERS Safety Report 21958968 (Version 1)
Quarter: 2023Q1

REPORT INFORMATION
  Report Type: Report from Study
  Country: FR (occurrence: FR)
  Receive Date: 20230206
  Receipt Date: 20230206
  Transmission Date: 20230418
  Serious: Yes (Life-Threatening, Hospitalization)
  Sender: FDA-Public Use
  Company Number: FR-MYLANLABS-2023M1013319

PATIENT

DRUGS (4)
  1. PROPAFENONE [Suspect]
     Active Substance: PROPAFENONE
     Indication: Product used for unknown indication
     Dosage: 5 GRAM
     Route: 065
  2. VENLAFAXINE [Suspect]
     Active Substance: VENLAFAXINE HYDROCHLORIDE
     Indication: Product used for unknown indication
     Dosage: 750 MILLIGRAM
     Route: 065
  3. ZOLPIDEM [Suspect]
     Active Substance: ZOLPIDEM TARTRATE
     Indication: Product used for unknown indication
     Dosage: 600 MILLIGRAM
     Route: 065
  4. OXAZEPAM [Suspect]
     Active Substance: OXAZEPAM
     Indication: Product used for unknown indication
     Dosage: 200 MILLIGRAM
     Route: 065

REACTIONS (3)
  - Shock [Unknown]
  - Toxicity to various agents [Unknown]
  - Overdose [Unknown]
